FAERS Safety Report 6705853-X (Version None)
Quarter: 2010Q2

REPORT INFORMATION
  Report Type: 
  Country: None (occurrence: None)
  Receive Date: 20100423
  Receipt Date: 20100126
  Transmission Date: 20101027
  Serious: No
  Sender: FDA-Public Use
  Company Number: ALL1-2010-00072

PATIENT
  Age: 14 Year
  Sex: Male
  Weight: 72.6 kg

DRUGS (5)
  1. VYVANSE [Suspect]
     Indication: DEPRESSION
     Dosage: 50 MG, 1X/DAY:QD, ORAL, 70 MG, 1X/DAY:QD, ORAL, 50 MG, 1X/DAY:QD, ORAL
     Route: 048
     Dates: start: 20090901, end: 20100103
  2. VYVANSE [Suspect]
     Indication: DEPRESSION
     Dosage: 50 MG, 1X/DAY:QD, ORAL, 70 MG, 1X/DAY:QD, ORAL, 50 MG, 1X/DAY:QD, ORAL
     Route: 048
     Dates: start: 20100104, end: 20100106
  3. VYVANSE [Suspect]
     Indication: DEPRESSION
     Dosage: 50 MG, 1X/DAY:QD, ORAL, 70 MG, 1X/DAY:QD, ORAL, 50 MG, 1X/DAY:QD, ORAL
     Route: 048
     Dates: start: 20100107
  4. LUNESTA [Concomitant]
  5. AMPICILLIN [Concomitant]

REACTIONS (6)
  - DRUG DISPENSING ERROR [None]
  - GAIT DISTURBANCE [None]
  - HYPOAESTHESIA [None]
  - INCORRECT DOSE ADMINISTERED [None]
  - OFF LABEL USE [None]
  - PERIPHERAL COLDNESS [None]
